FAERS Safety Report 5804130-9 (Version None)
Quarter: 2008Q3

REPORT INFORMATION
  Report Type: 
  Country: None (occurrence: None)
  Receive Date: 20080702
  Receipt Date: 20070727
  Transmission Date: 20090109
  Serious: Yes (Other)
  Sender: FDA-Public Use
  Company Number: HQWYE317331JUL07

PATIENT
  Age: 45 Year
  Sex: Female
  Weight: 81.72 kg

DRUGS (1)
  1. IBUPROFEN TABLETS [Suspect]
     Indication: NUTRITIONAL SUPPORT
     Dosage: 1-2 CAPLETS AS NEEDED, ORAL
     Route: 048

REACTIONS (2)
  - MENSTRUATION IRREGULAR [None]
  - SOMNOLENCE [None]
